FAERS Safety Report 5443937-7 (Version None)
Quarter: 2007Q3

REPORT INFORMATION
  Report Type: 
  Country: None (occurrence: None)
  Receive Date: 20070831
  Receipt Date: 20070821
  Transmission Date: 20080115
  Serious: Yes (Hospitalization)
  Sender: FDA-Public Use
  Company Number: 2007BI017762

PATIENT
  Age: 54 Year
  Sex: Female

DRUGS (2)
  1. AVONEX [Suspect]
     Indication: MULTIPLE SCLEROSIS
     Dosage: IM
     Route: 030
     Dates: start: 20070721
  2. COUMADIN [Concomitant]

REACTIONS (4)
  - DIAPHRAGMATIC DISORDER [None]
  - DYSPNOEA [None]
  - GASTRIC DISORDER [None]
  - HERNIA [None]
